FAERS Safety Report 4847149-7 (Version None)
Quarter: 2005Q4

REPORT INFORMATION
  Report Type: 
  Country: None (occurrence: None)
  Receive Date: 20051205
  Receipt Date: 20051205
  Transmission Date: 20060501
  Serious: Yes (Other)
  Sender: FDA-Public Use
  Company Number: None

PATIENT
  Age: 79 Year
  Sex: Female
  Weight: 82.5547 kg

DRUGS (1)
  1. ACTONEL [Suspect]
     Indication: OSTEOPOROSIS
     Dosage: 35MG WEEKLY PO
     Route: 048
     Dates: start: 20041001, end: 20051101

REACTIONS (2)
  - BONE DISORDER [None]
  - OSTEOPOROSIS [None]
